FAERS Safety Report 4856506-4 (Version None)
Quarter: 2005Q4

REPORT INFORMATION
  Report Type: 
  Country: None (occurrence: None)
  Receive Date: 20051219
  Receipt Date: 20050223
  Transmission Date: 20060501
  Serious: No
  Sender: FDA-Public Use
  Company Number: US-GLAXOSMITHKLINE-A0546886A

PATIENT
  Age: 35 Year
  Sex: Female

DRUGS (4)
  1. NICODERM CQ [Suspect]
     Dates: end: 20050221
  2. NICODERM CQ [Suspect]
     Dates: start: 20050222, end: 20050222
  3. NICODERM CQ [Suspect]
  4. CIPROFLOXACIN [Concomitant]

REACTIONS (4)
  - APPLICATION SITE ERYTHEMA [None]
  - APPLICATION SITE PRURITUS [None]
  - APPLICATION SITE SWELLING [None]
  - CONJUNCTIVITIS INFECTIVE [None]
